FAERS Safety Report 9366910 (Version 1)
Quarter: 2013Q2

REPORT INFORMATION
  Report Type: Spontaneous
  Country: IT (occurrence: None)
  Receive Date: 20130621
  Receipt Date: 20130621
  Transmission Date: 20140414
  Serious: Yes (Other)
  Sender: FDA-Public Use
  Company Number: DSM-2013-00573

PATIENT
  Age: 51 Year
  Sex: Female

DRUGS (1)
  1. PLAUNAC [Suspect]
     Indication: HYPERTENSION
     Route: 048
     Dates: start: 201305

REACTIONS (2)
  - Bronchitis [None]
  - Influenza [None]
